FAERS Safety Report 8257498-0 (Version None)
Quarter: 2012Q2

REPORT INFORMATION
  Report Type: 
  Country: None (occurrence: None)
  Receive Date: 20120403
  Receipt Date: 20120323
  Transmission Date: 20120825
  Serious: Yes (Other)
  Sender: FDA-Public Use
  Company Number: US-ROCHE-549220

PATIENT
  Sex: Female
  Weight: 61.2 kg

DRUGS (3)
  1. ACCUTANE [Suspect]
     Indication: ACNE
     Dosage: THE PATIENT WAS TAKING ISOTRETINOIN AT A DOSE OF 40/80 DAILY
     Route: 065
     Dates: start: 20011225, end: 20020528
  2. DEPO-PROVERA [Suspect]
     Indication: ENDOMETRIOSIS
     Route: 065
     Dates: start: 19980101, end: 20050801
  3. TOPAMAX [Suspect]
     Indication: PRODUCT USED FOR UNKNOWN INDICATION
     Route: 065

REACTIONS (14)
  - INFLAMMATORY BOWEL DISEASE [None]
  - EATING DISORDER [None]
  - OSTEOPENIA [None]
  - DEPRESSION [None]
  - ARTHRALGIA [None]
  - ANAEMIA [None]
  - ANAL FISSURE [None]
  - COLITIS ULCERATIVE [None]
  - CROHN'S DISEASE [None]
  - ANXIETY [None]
  - PANIC ATTACK [None]
  - HAEMORRHOIDS [None]
  - SACROILIITIS [None]
  - ADJUSTMENT DISORDER [None]
